FAERS Safety Report 9817653 (Version 1)
Quarter: 2014Q1

REPORT INFORMATION
  Report Type: Report from Study
  Country: GR (occurrence: GR)
  Receive Date: 20140115
  Receipt Date: 20140115
  Transmission Date: 20141002
  Serious: Yes (Other)
  Sender: FDA-Public Use
  Company Number: GR-ROCHE-1332087

PATIENT
  Age: 53 Year
  Sex: Male

DRUGS (5)
  1. BEVACIZUMAB [Suspect]
     Indication: LUNG ADENOCARCINOMA
     Dosage: TOTAL
     Route: 042
     Dates: start: 20110117, end: 20110330
  2. BEVACIZUMAB [Suspect]
     Indication: LUNG ADENOCARCINOMA
     Dosage: TOTAL
     Route: 042
     Dates: start: 20111115, end: 20111216
  3. ERLOTINIB [Suspect]
     Indication: LUNG ADENOCARCINOMA
     Route: 048
     Dates: start: 20130628, end: 20130913
  4. CARBOPLATIN [Concomitant]
     Indication: LUNG ADENOCARCINOMA
     Route: 042
     Dates: start: 20110117, end: 20110330
  5. PEMETREXED [Concomitant]
     Indication: LUNG ADENOCARCINOMA
     Route: 042
     Dates: start: 20110117, end: 20110330

REACTIONS (8)
  - Rash [Unknown]
  - Asthenia [Unknown]
  - Haemoptysis [Unknown]
  - Epistaxis [Unknown]
  - Gastrointestinal disorder [Unknown]
  - Nausea [Unknown]
  - Dizziness [Unknown]
  - Disease progression [Unknown]
